FAERS Safety Report 17946731 (Version 1)
Quarter: 2020Q2

REPORT INFORMATION
  Report Type: Spontaneous
  Country: US (occurrence: US)
  Receive Date: 20200626
  Receipt Date: 20200626
  Transmission Date: 20200714
  Serious: Yes (Disabling, Other)
  Sender: FDA-Public Use
  Company Number: US-REGENERON PHARMACEUTICALS, INC.-2020-45464

PATIENT

DRUGS (3)
  1. EYLEA [Suspect]
     Active Substance: AFLIBERCEPT
     Indication: NEOVASCULAR AGE-RELATED MACULAR DEGENERATION
     Dosage: RIGHT EYE
     Route: 031
  2. EYLEA [Suspect]
     Active Substance: AFLIBERCEPT
     Dosage: LEFT EYE
     Route: 031
     Dates: start: 20200616, end: 20200616
  3. EYLEA [Suspect]
     Active Substance: AFLIBERCEPT
     Dosage: LEFT EYE
     Route: 031

REACTIONS (3)
  - Eye inflammation [Unknown]
  - Blindness [Unknown]
  - Vision blurred [Unknown]
